FAERS Safety Report 9089647 (Version 1)
Quarter: 2013Q1

REPORT INFORMATION
  Report Type: Spontaneous
  Country: FR (occurrence: FR)
  Receive Date: 20130201
  Receipt Date: 20130201
  Transmission Date: 20140127
  Serious: Yes (Hospitalization, Other)
  Sender: FDA-Public Use
  Company Number: FR-UCBSA-076949

PATIENT
  Sex: Female

DRUGS (7)
  1. KEPPRA [Suspect]
     Route: 048
  2. KEPPRA [Suspect]
     Dosage: UNKNOWN
     Dates: start: 2010
  3. URBANYL [Suspect]
     Route: 048
     Dates: end: 2012
  4. PARACETAMOL CODEINE [Suspect]
     Route: 048
     Dates: end: 20120319
  5. ZOLPIDEM [Suspect]
     Route: 048
     Dates: end: 20120319
  6. FUROSEMIDE [Concomitant]
  7. KALEORID [Concomitant]

REACTIONS (6)
  - Weight decreased [Not Recovered/Not Resolved]
  - Dry mouth [Recovered/Resolved]
  - Balance disorder [Recovered/Resolved]
  - General physical health deterioration [Unknown]
  - Decreased appetite [Unknown]
  - Incorrect route of drug administration [Unknown]
